FAERS Safety Report 8190674 (Version 4)
Quarter: 2013Q3

REPORT INFORMATION
  Report Type: Spontaneous
  Country: US (occurrence: None)
  Receive Date: 20111005
  Receipt Date: 20130925
  Transmission Date: 20140515
  Serious: Yes (Hospitalization)
  Sender: FDA-Public Use
  Company Number: 2011028980

PATIENT
  Age: 51 Year
  Sex: Male
  Weight: 68.04 kg

DRUGS (32)
  1. HIZENTRA [Suspect]
     Indication: IMMUNODEFICIENCY COMMON VARIABLE
     Dosage: (1 GM 5 ML VIAL;  SUBCUTANEOUS
     Route: 058
     Dates: start: 20110531
  2. HIZENTRA [Suspect]
     Dosage: (4 GM 20 ML VIA SUBCUTANEOUS
     Route: 059
     Dates: start: 20110531
  3. HIZENTRA [Suspect]
     Dosage: (1 GM 5 ML VIAL SUBCUTANEOUS)
     Route: 058
     Dates: start: 20110531
  4. HIZENTRA [Suspect]
     Dosage: (2 GM 10 ML VIAL SUBCUTANEOUS)
     Route: 058
     Dates: start: 20110531
  5. HIZENTRA [Suspect]
     Dosage: (4 GM 20 ML VIAL SUBCUTANEOUS)
     Route: 058
     Dates: start: 20110921, end: 20110921
  6. HIZENTRA [Suspect]
     Dosage: (7 G 1X/WEEK, IN 2 SITES OVER 1-2 HOURS SUBCUTANEOUS)
     Route: 058
     Dates: start: 20110921, end: 20110921
  7. HIZENTRA [Suspect]
     Dates: start: 20110921, end: 20110921
  8. HIZENTRA [Suspect]
  9. OXYGEN [Concomitant]
  10. EFFEXOR XR [Concomitant]
  11. ATENOLOL [Concomitant]
  12. NABUMETONE [Concomitant]
  13. LISINOPRIL [Concomitant]
  14. DIAZEPAM [Concomitant]
  15. PRILOSEC [Concomitant]
  16. OXYCODONE HYDROCHLORIDE [Concomitant]
  17. CYANOCOBALAMIN [Concomitant]
  18. TESTOSTERONE CYPRIONATE (TESTOSTERONE) [Concomitant]
  19. BACTRIM [Concomitant]
  20. LIODERM (LIDOCAINE) [Concomitant]
  21. FLEXERIL [Concomitant]
  22. ACETAMINOPHEN\HYDROCODONE BITARTRATE [Concomitant]
  23. PHENTERMINE (PHENTERMINE) [Concomitant]
  24. RIBOFLAVIN (RIBOFLAVIN) [Concomitant]
  25. COQ-10 (UBIDECARENONE) [Concomitant]
  26. CAMBIA (DICLOFENAC) [Concomitant]
  27. AZITHROMYCIN (AZITHROMYCIN) [Concomitant]
  28. DIPHENHYDRAMINE (DIPHENHYDRAMINE) [Concomitant]
  29. EPI-PEN (EPINEPHRINE) [Concomitant]
  30. BUTORPHANOL (BUTORPHANOL) [Concomitant]
  31. BUTALBITAL-ASA-CAFFINE (BUTALBITAL W/ASPIRIN, CAFFEINE) [Concomitant]
  32. ACETYL L-CARNITINE (ACETYLCARNITINE) [Concomitant]

REACTIONS (7)
  - Infusion site oedema [None]
  - Pain [None]
  - Fatigue [None]
  - Oedema peripheral [None]
  - Blood immunoglobulin G decreased [None]
  - Skin infection [None]
  - Influenza like illness [None]
